FAERS Safety Report 4608737-6 (Version None)
Quarter: 2005Q1

REPORT INFORMATION
  Report Type: 
  Country: None (occurrence: None)
  Receive Date: 20050315
  Receipt Date: 20050307
  Transmission Date: 20050727
  Serious: Yes (Other)
  Sender: FDA-Public Use
  Company Number: PHBS2005JP03505

PATIENT
  Age: 46 Year
  Sex: Male

DRUGS (1)
  1. VOLTAREN [Suspect]
     Indication: POST PROCEDURAL PAIN
     Dosage: UNK, UNK
     Route: 054
     Dates: end: 20050307

REACTIONS (2)
  - DYSPNOEA [None]
  - SHOCK [None]
